FAERS Safety Report 5978847-X (Version None)
Quarter: 2008Q4

REPORT INFORMATION
  Report Type: 
  Country: None (occurrence: None)
  Receive Date: 20081204
  Receipt Date: 20081201
  Transmission Date: 20090506
  Serious: Yes (Other)
  Sender: FDA-Public Use
  Company Number: PHHY2008TR29236

PATIENT
  Age: 55 Year
  Sex: Female

DRUGS (1)
  1. EXFORGE [Suspect]
     Indication: HYPERTENSION
     Dosage: 160/10 ONCE DAILY
     Route: 048
     Dates: end: 20081120

REACTIONS (3)
  - ERYTHEMA [None]
  - INFLAMMATION [None]
  - PRURITUS [None]
